FAERS Safety Report 5327662-9 (Version None)
Quarter: 2007Q2

REPORT INFORMATION
  Report Type: 
  Country: None (occurrence: None)
  Receive Date: 20070517
  Receipt Date: 20070507
  Transmission Date: 20071010
  Serious: Yes (Hospitalization)
  Sender: FDA-Public Use
  Company Number: B0470813A

PATIENT
  Age: 31 Year
  Sex: Female

DRUGS (1)
  1. ARIXTRA [Suspect]
     Indication: HEPARIN-INDUCED THROMBOCYTOPENIA
     Dosage: 7.5MG PER DAY
     Route: 058
     Dates: start: 20070201, end: 20070209

REACTIONS (2)
  - ANAEMIA [None]
  - HAEMATURIA [None]
